FAERS Safety Report 22149386 (Version 1)
Quarter: 2023Q1

REPORT INFORMATION
  Report Type: Spontaneous
  Country: DE (occurrence: DE)
  Receive Date: 20230329
  Receipt Date: 20230329
  Transmission Date: 20230418
  Serious: Yes (Hospitalization)
  Sender: FDA-Public Use
  Company Number: DE-KOREA IPSEN Pharma-2023-07121

PATIENT

DRUGS (1)
  1. BOTULINUM TOXIN TYPE A [Suspect]
     Active Substance: BOTULINUM TOXIN TYPE A
     Indication: Weight decreased
     Route: 065

REACTIONS (7)
  - Dyspnoea [Unknown]
  - Poisoning [Unknown]
  - Visual impairment [Unknown]
  - Speech disorder [Unknown]
  - Muscular weakness [Unknown]
  - Dysphagia [Unknown]
  - Off label use [Recovered/Resolved]

NARRATIVE: CASE EVENT DATE: 20230222
